FAERS Safety Report 24455000 (Version 2)
Quarter: 2024Q4

REPORT INFORMATION
  Report Type: Spontaneous
  Country: CN (occurrence: CN)
  Receive Date: 20241017
  Receipt Date: 20241018
  Transmission Date: 20250115
  Serious: No
  Sender: ROCHE
  Company Number: CN-ROCHE-3481498

PATIENT
  Age: 30 Year
  Sex: Female

DRUGS (10)
  1. MABTHERA [Suspect]
     Active Substance: RITUXIMAB
     Indication: Systemic lupus erythematosus
     Route: 065
     Dates: start: 20191101
  2. MABTHERA [Suspect]
     Active Substance: RITUXIMAB
     Indication: Haemophagocytic lymphohistiocytosis
     Route: 065
     Dates: start: 20191108
  3. MABTHERA [Suspect]
     Active Substance: RITUXIMAB
     Route: 065
     Dates: start: 20191128
  4. METHYLPREDNISOLONE [Concomitant]
     Active Substance: METHYLPREDNISOLONE
  5. METHYLPREDNISOLONE [Concomitant]
     Active Substance: METHYLPREDNISOLONE
  6. ZYPREXA [Concomitant]
     Active Substance: OLANZAPINE
     Route: 048
  7. MEROPENEM [Concomitant]
     Active Substance: MEROPENEM
  8. MOXIFLOXACIN HYDROCHLORIDE [Concomitant]
     Active Substance: MOXIFLOXACIN HYDROCHLORIDE
  9. OLANZAPINE [Concomitant]
     Active Substance: OLANZAPINE
  10. BELIMUMAB [Concomitant]
     Active Substance: BELIMUMAB
     Dosage: 360-480 MG

REACTIONS (1)
  - Infection [Unknown]
